FAERS Safety Report 16940330 (Version 10)
Quarter: 2020Q2

REPORT INFORMATION
  Report Type: Report from Study
  Country: CO (occurrence: CO)
  Receive Date: 20191021
  Receipt Date: 20200403
  Transmission Date: 20200713
  Serious: Yes (Death, Hospitalization)
  Sender: FDA-Public Use
  Company Number: CO-EISAI MEDICAL RESEARCH-EC-2019-061544

PATIENT
  Age: 73 Year
  Sex: Female
  Weight: 82.8 kg

DRUGS (5)
  1. LENVATINIB [Suspect]
     Active Substance: LENVATINIB
     Route: 048
     Dates: start: 20190806, end: 20190806
  2. PEMBROLIZUMAB. [Suspect]
     Active Substance: PEMBROLIZUMAB
     Indication: ENDOMETRIAL CANCER
     Route: 041
     Dates: start: 20190716, end: 20190716
  3. DAFLON [Concomitant]
     Dates: start: 200401
  4. LENVATINIB [Suspect]
     Active Substance: LENVATINIB
     Indication: ENDOMETRIAL CANCER
     Dosage: STARTING DOSE 20 MILLIGRAM, FLUCTUATED DOSES
     Route: 048
     Dates: start: 20190716, end: 20190805
  5. PREDNISONE. [Concomitant]
     Active Substance: PREDNISONE
     Dates: start: 20190810

REACTIONS (2)
  - Acute myocardial infarction [Fatal]
  - Bile duct obstruction [Not Recovered/Not Resolved]

NARRATIVE: CASE EVENT DATE: 20190827
